FAERS Safety Report 15538892 (Version 2)
Quarter: 2020Q1

REPORT INFORMATION
  Report Type: Spontaneous
  Country: US (occurrence: US)
  Receive Date: 20181022
  Receipt Date: 20200120
  Transmission Date: 20200409
  Serious: Yes (Life-Threatening, Hospitalization)
  Sender: FDA-Public Use
  Company Number: US-ENDO PHARMACEUTICALS INC-2018-042103

PATIENT
  Sex: Female

DRUGS (1)
  1. GILDESS FE 1.5/30 [Suspect]
     Active Substance: ETHINYL ESTRADIOL\NORETHINDRONE ACETATE
     Indication: PRODUCT USED FOR UNKNOWN INDICATION
     Dosage: UNK UNKNOWN, UNKNOWN
     Route: 065

REACTIONS (5)
  - Emotional distress [Unknown]
  - Unevaluable event [Unknown]
  - Impaired work ability [Unknown]
  - Ectopic pregnancy under hormonal contraception [Unknown]
  - Mental disorder [Unknown]

NARRATIVE: CASE EVENT DATE: 20161012
